FAERS Safety Report 5293056-8 (Version None)
Quarter: 2007Q2

REPORT INFORMATION
  Report Type: 
  Country: None (occurrence: None)
  Receive Date: 20070411
  Receipt Date: 20070405
  Transmission Date: 20071010
  Serious: Yes (Life-Threatening)
  Sender: FDA-Public Use
  Company Number: PHBS2007SA06063

PATIENT
  Age: 50 Year

DRUGS (2)
  1. VOLTAREN [Suspect]
     Indication: TOOTHACHE
     Dosage: 75 MG/DAY
     Route: 030
     Dates: start: 20070324
  2. VIAGRA [Concomitant]

REACTIONS (3)
  - BLOOD PRESSURE DECREASED [None]
  - DIZZINESS [None]
  - LOSS OF CONSCIOUSNESS [None]
